FAERS Safety Report 17249505 (Version 1)
Quarter: 2020Q1

REPORT INFORMATION
  Report Type: Other
  Country: US (occurrence: US)
  Receive Date: 20200108
  Receipt Date: 20200108
  Transmission Date: 20200409
  Serious: Yes (Other)
  Sender: FDA-Public Use
  Company Number: US-GUTHY-RENKER, LLC-2078686

PATIENT
  Age: 63 Year
  Sex: Female

DRUGS (1)
  1. MEANINGFUL BEAUTY ENVIRONMENTAL PROTECTING MOISTURIZER SPF 30 [Suspect]
     Active Substance: AVOBENZONE\HOMOSALATE\OCTISALATE\OXYBENZONE
     Indication: PROPHYLAXIS AGAINST SOLAR RADIATION
     Dates: start: 20191231, end: 20191231

REACTIONS (3)
  - Dyspnoea [None]
  - Erythema [None]
  - Swelling face [Recovered/Resolved]

NARRATIVE: CASE EVENT DATE: 20191231
